FAERS Safety Report 8429397-2 (Version None)
Quarter: 2012Q2

REPORT INFORMATION
  Report Type: 
  Country: None (occurrence: None)
  Receive Date: 20120612
  Receipt Date: 20120606
  Transmission Date: 20120825
  Serious: Yes (Other)
  Sender: FDA-Public Use
  Company Number: US-PFIZER INC-2012136641

PATIENT
  Sex: Male

DRUGS (2)
  1. AMLODIPINE [Concomitant]
     Dosage: UNK
  2. SUTENT [Suspect]
     Indication: THYMOMA MALIGNANT
     Dosage: 50 MG, 1X/DAY
     Route: 048
     Dates: start: 20120515

REACTIONS (2)
  - FATIGUE [None]
  - DIABETES MELLITUS [None]
